FAERS Safety Report 9891296 (Version 2)
Quarter: 2014Q1

REPORT INFORMATION
  Report Type: Spontaneous
  Country: GB (occurrence: None)
  Receive Date: 20140210
  Receipt Date: 20140304
  Transmission Date: 20141002
  Serious: Yes (Hospitalization)
  Sender: FDA-Public Use
  Company Number: GB2014K0191SPO

PATIENT
  Age: 76 Year
  Sex: Female

DRUGS (14)
  1. LANSOPRAZOLE [Suspect]
     Indication: PRODUCT USED FOR UNKNOWN INDICATION
     Route: 048
     Dates: start: 20131101, end: 20140110
  2. ALLOPURINOL [Suspect]
     Indication: GOUT
     Route: 048
     Dates: start: 20131101, end: 20140110
  3. AMINOPHYLINE (AMINOPHYLLINE) [Concomitant]
  4. DOSULEPIN (DOSULEPIN) [Concomitant]
  5. FUROSEMIDE (FUROSEMIDE) [Concomitant]
  6. INDAPAMIDE (INDAPAMIDE) [Concomitant]
  7. NOVOMIX (INSULIN ASPART) [Concomitant]
  8. RAMIPRIL (RAMIPRIL) [Concomitant]
  9. SALBUTAMOL (SALBUTAMOL) [Concomitant]
  10. SERETIDE (FLUTICASONE PROPIONATE MICRONISED, SALMETEROL XINAFOATE MOCIRONISED) [Concomitant]
  11. SIMVASTATIN (SIMVASTATIN) [Concomitant]
  12. TIOTROPIUM (TIOTROPIUM) [Concomitant]
  13. ASPIRIN (ASPIRIN) [Concomitant]
  14. ARANESP (DARBEPOETIN ALFA) [Suspect]
     Indication: NEPHROGENIC ANAEMIA
     Route: 058
     Dates: start: 20131014

REACTIONS (10)
  - Dermatitis exfoliative [None]
  - Pruritus generalised [None]
  - Dermatitis exfoliative [None]
  - Drug eruption [None]
  - Eczema [None]
  - Lymphocytic infiltration [None]
  - Parakeratosis [None]
  - Rash erythematous [None]
  - Skin exfoliation [None]
  - Wheezing [None]
